FAERS Safety Report 22190494 (Version 1)
Quarter: 2023Q2

REPORT INFORMATION
  Report Type: Spontaneous
  Country: US (occurrence: None)
  Receive Date: 20230410
  Receipt Date: 20230410
  Transmission Date: 20230721
  Serious: Yes (Death, Hospitalization)
  Sender: FDA-Public Use
  Company Number: US-ROCHE-3323913

PATIENT

DRUGS (1)
  1. LUNSUMIO [Suspect]
     Active Substance: MOSUNETUZUMAB-AXGB
     Indication: Lymphoma
     Dosage: NO
     Route: 065

REACTIONS (3)
  - Cytokine release syndrome [Recovered/Resolved]
  - Death [Fatal]
  - Mediastinal disorder [Unknown]
